FAERS Safety Report 6985938-3 (Version None)
Quarter: 2010Q3

REPORT INFORMATION
  Report Type: 
  Country: None (occurrence: None)
  Receive Date: 20100915
  Receipt Date: 20100907
  Transmission Date: 20110219
  Serious: Yes (Hospitalization)
  Sender: FDA-Public Use
  Company Number: KR-ELI_LILLY_AND_COMPANY-KR201009002166

PATIENT
  Age: 38 Year
  Sex: Female

DRUGS (1)
  1. HUMALOG MIX 75/25 [Suspect]
     Dosage: 22 U, 2/D
     Dates: start: 20100816

REACTIONS (2)
  - ARTHRITIS [None]
  - JOINT WARMTH [None]
